FAERS Safety Report 24883775 (Version 1)
Quarter: 2025Q1

REPORT INFORMATION
  Report Type: Report from Study
  Country: CO (occurrence: CO)
  Receive Date: 20250124
  Receipt Date: 20250124
  Transmission Date: 20250409
  Serious: Yes (Other)
  Sender: ASTELLAS
  Company Number: CO-ASTELLAS-2025-AER-003694

PATIENT
  Age: 57 Year
  Sex: Male
  Weight: 48 kg

DRUGS (4)
  1. PROGRAF [Suspect]
     Active Substance: TACROLIMUS
     Indication: Heart transplant
     Dosage: PREVIOUS: PROGRAF XL 5MG (1 CAPSULE) AND PROGRAF XL 1MG (3 CAPSULES) DAILY DOSE 8MG EVERY 24 HOURS.
     Route: 048
     Dates: start: 20220310
  2. PROGRAF [Suspect]
     Active Substance: TACROLIMUS
     Dosage: PREVIOUS: PROGRAF XL 5MG (1 CAPSULE) AND PROGRAF XL 1MG (3 CAPSULES) DAILY DOSE 8MG EVERY 24 HOURS.
     Route: 048
  3. PROGRAF [Suspect]
     Active Substance: TACROLIMUS
     Indication: Heart transplant
     Dosage: PREVIOUS: PROGRAF XL 5MG (1 CAPSULE) AND PROGRAF XL 1MG (3 CAPSULES) DAILY DOSE 8MG EVERY 24 HOURS.
     Route: 048
     Dates: start: 20220310
  4. PROGRAF [Suspect]
     Active Substance: TACROLIMUS
     Dosage: PREVIOUS: PROGRAF XL 5MG (1 CAPSULE) AND PROGRAF XL 1MG (3 CAPSULES) DAILY DOSE 8MG EVERY 24 HOURS.
     Route: 048

REACTIONS (1)
  - Secondary immunodeficiency [Unknown]

NARRATIVE: CASE EVENT DATE: 20250101
